FAERS Safety Report 9366331 (Version 1)
Quarter: 2013Q2

REPORT INFORMATION
  Report Type: Spontaneous
  Country: US (occurrence: US)
  Receive Date: 20130625
  Receipt Date: 20130625
  Transmission Date: 20140414
  Serious: Yes (Other)
  Sender: FDA-Public Use
  Company Number: US-JNJFOC-20130609219

PATIENT
  Sex: Female

DRUGS (4)
  1. DOXORUBICIN [Suspect]
     Indication: BREAST CANCER
     Dosage: 15 MINUTES EVERY 21 DAYS
     Route: 042
  2. DOCETAXEL [Suspect]
     Indication: BREAST CANCER
     Dosage: OVER 60 MINUTES EVERY 21 DAYS
     Route: 042
  3. INVESTIGATIONAL PRODUCT [Suspect]
     Indication: BREAST CANCER
     Dosage: ON EITHER DAY 3 OR 6 OF THERAPY
     Route: 042
  4. DEXAMETHASONE [Concomitant]
     Indication: PROPHYLAXIS
     Dosage: FOR A TOTAL OF SIX DOSES, STARTING 24 H BEFORE CHEMOTHERAPY ADMINISTRATION
     Route: 048

REACTIONS (3)
  - Fatigue [Unknown]
  - Vomiting [Unknown]
  - Device related infection [Unknown]
